FAERS Safety Report 9123891 (Version 1)
Quarter: 2013Q1

REPORT INFORMATION
  Report Type: Spontaneous
  Country: GB (occurrence: GB)
  Receive Date: 20130116
  Receipt Date: 20130116
  Transmission Date: 20140127
  Serious: Yes (Other)
  Sender: FDA-Public Use
  Company Number: GB-PFIZER INC-2013017313

PATIENT
  Sex: Male

DRUGS (1)
  1. EFEXOR XL [Suspect]

REACTIONS (1)
  - Gastrointestinal disorder [Unknown]
